FAERS Safety Report 24721130 (Version 1)
Quarter: 2024Q4

REPORT INFORMATION
  Report Type: Spontaneous
  Country: US (occurrence: US)
  Receive Date: 20241211
  Receipt Date: 20241211
  Transmission Date: 20250115
  Serious: Yes (Death, Life-Threatening, Hospitalization)
  Sender: ACCORD
  Company Number: US-Accord-458105

PATIENT
  Age: 58 Year
  Sex: Male

DRUGS (4)
  1. FLUOROURACIL [Interacting]
     Active Substance: FLUOROURACIL
     Indication: Adenocarcinoma metastatic
  2. OXALIPLATIN [Concomitant]
     Active Substance: OXALIPLATIN
     Indication: Adenocarcinoma metastatic
  3. LEUCOVORIN [Concomitant]
     Active Substance: LEUCOVORIN\LEUCOVORIN CALCIUM
     Indication: Adenocarcinoma metastatic
  4. FLUOROURACIL [Interacting]
     Active Substance: FLUOROURACIL
     Indication: Adenocarcinoma metastatic
     Dosage: 2.4 G/M2

REACTIONS (18)
  - Hypernatraemia [Fatal]
  - Neutropenic colitis [Fatal]
  - Colitis [Fatal]
  - Mucosal inflammation [Fatal]
  - Atrial fibrillation [Recovered/Resolved]
  - Sepsis [Fatal]
  - Blood lactic acid increased [Fatal]
  - Renal infarct [Fatal]
  - Splenic infarction [Fatal]
  - Middle cerebral artery stroke [Fatal]
  - Pleural effusion [Fatal]
  - Acute respiratory distress syndrome [Fatal]
  - Renal failure [Fatal]
  - Myelosuppression [Fatal]
  - Multiple organ dysfunction syndrome [Fatal]
  - Bradycardia [Fatal]
  - Cardiac arrest [Fatal]
  - Drug-genetic interaction [Fatal]
